FAERS Safety Report 8604722-8 (Version None)
Quarter: 2012Q3

REPORT INFORMATION
  Report Type: 
  Country: None (occurrence: None)
  Receive Date: 20120820
  Receipt Date: 20120813
  Transmission Date: 20120928
  Serious: Yes (Other)
  Sender: FDA-Public Use
  Company Number: CA-UCBSA-052368

PATIENT
  Age: 62 Year
  Sex: Male
  Weight: 68.18 kg

DRUGS (4)
  1. CIMZIA [Suspect]
     Route: 058
     Dates: start: 20120706, end: 20120706
  2. ARAVA [Concomitant]
     Indication: RHEUMATOID ARTHRITIS
     Route: 048
     Dates: start: 20110901
  3. LEVOTHYROXINE SODIUM [Concomitant]
     Indication: THYROID DISORDER
     Route: 048
  4. CIMZIA [Suspect]
     Indication: RHEUMATOID ARTHRITIS
     Dosage: NO. OF INTAKES: 2 ND DOSE
     Route: 058
     Dates: start: 20120209, end: 20120227

REACTIONS (3)
  - DRY MOUTH [None]
  - RASH [None]
  - PRURITUS [None]
